FAERS Safety Report 25006167 (Version 2)
Quarter: 2025Q1

REPORT INFORMATION
  Report Type: Spontaneous
  Country: JP (occurrence: JP)
  Receive Date: 20250224
  Receipt Date: 20250307
  Transmission Date: 20250409
  Serious: Yes (Death)
  Sender: RIGEL PHARMACEUTICALS
  Company Number: JP-RIGEL Pharmaceuticals INC- 20250200137

PATIENT
  Age: 83 Year
  Sex: Male

DRUGS (5)
  1. TAVALISSE [Suspect]
     Active Substance: FOSTAMATINIB
     Indication: Immune thrombocytopenia
     Route: 048
     Dates: start: 20230906, end: 202406
  2. TAVALISSE [Suspect]
     Active Substance: FOSTAMATINIB
     Route: 048
  3. VYVGART [Concomitant]
     Active Substance: EFGARTIGIMOD ALFA-FCAB
     Indication: Product used for unknown indication
     Route: 041
     Dates: start: 202406
  4. VYVGART [Concomitant]
     Active Substance: EFGARTIGIMOD ALFA-FCAB
     Dosage: UNK, QOW
     Route: 041
  5. ADRENAL GLAND [Concomitant]
     Indication: Product used for unknown indication
     Route: 065

REACTIONS (2)
  - Pneumonia pseudomonal [Fatal]
  - Bacteraemia [Fatal]

NARRATIVE: CASE EVENT DATE: 20240830
